FAERS Safety Report 21580558 (Version 2)
Quarter: 2022Q4

REPORT INFORMATION
  Report Type: Report from Study
  Country: AT (occurrence: AT)
  Receive Date: 20221111
  Receipt Date: 20221129
  Transmission Date: 20230113
  Serious: Yes (Death, Life-Threatening, Hospitalization, Disabling, Other)
  Sender: FDA-Public Use
  Company Number: AT-ABBVIE-4188533

PATIENT
  Age: 73 Year
  Sex: Male
  Weight: 69 kg

DRUGS (13)
  1. HUMIRA [Suspect]
     Active Substance: ADALIMUMAB
     Indication: Colitis ulcerative
     Route: 058
     Dates: start: 20140303, end: 20190211
  2. TECENTRIQ [Concomitant]
     Active Substance: ATEZOLIZUMAB
     Indication: Hepatocellular carcinoma
     Route: 041
     Dates: start: 20210422
  3. AVASTIN [Concomitant]
     Active Substance: BEVACIZUMAB
     Indication: Hepatocellular carcinoma
     Dosage: 15 KG PER DAY
     Route: 041
     Dates: start: 20210422
  4. SALOFALK [Concomitant]
     Indication: Colitis ulcerative
     Route: 054
     Dates: start: 202202
  5. PREDNISOLONE [Concomitant]
     Active Substance: PREDNISOLONE
     Indication: Colitis ulcerative
     Route: 048
     Dates: start: 202202
  6. SALOFALK [Concomitant]
     Indication: Colitis ulcerative
     Dosage: TIME INTERVAL: 0.33333333 DAYS
     Route: 054
     Dates: start: 202111
  7. EUTHYROX [Concomitant]
     Active Substance: LEVOTHYROXINE SODIUM
     Indication: Colitis ulcerative
     Route: 048
     Dates: start: 202110
  8. TRESIBA [Concomitant]
     Active Substance: INSULIN DEGLUDEC
     Indication: Type 2 diabetes mellitus
  9. FENOFIBRATE\SIMVASTATIN [Concomitant]
     Active Substance: FENOFIBRATE\SIMVASTATIN
     Indication: Hypercholesterolaemia
     Dosage: 145/40 MG
     Dates: start: 201603
  10. NOVORAPID [Concomitant]
     Active Substance: INSULIN ASPART
     Indication: Type 2 diabetes mellitus
     Dosage: TIME INTERVAL: 0.33333333 DAYS
     Route: 058
     Dates: start: 2008
  11. PENTASA [Concomitant]
     Active Substance: MESALAMINE
     Indication: Colitis ulcerative
     Route: 048
     Dates: start: 201302
  12. OLEOVIT [Concomitant]
     Indication: Vitamin D deficiency
     Route: 048
     Dates: start: 201512
  13. JARDIANCE [Concomitant]
     Active Substance: EMPAGLIFLOZIN
     Indication: Type 2 diabetes mellitus
     Route: 048
     Dates: start: 201512

REACTIONS (1)
  - Sepsis [Fatal]

NARRATIVE: CASE EVENT DATE: 20221016
